FAERS Safety Report 14271500 (Version 2)
Quarter: 2018Q1

REPORT INFORMATION
  Report Type: Spontaneous
  Country: IL (occurrence: IL)
  Receive Date: 20171211
  Receipt Date: 20180125
  Transmission Date: 20180508
  Serious: Yes (Hospitalization)
  Sender: FDA-Public Use
  Company Number: IL-AMGEN-ISRSP2017181392

PATIENT
  Age: 69 Year
  Sex: Female
  Weight: 60 kg

DRUGS (9)
  1. PROLIA [Suspect]
     Active Substance: DENOSUMAB
     Indication: OSTEOPOROSIS
     Dosage: 60 MG, Q6MO
     Route: 058
     Dates: start: 201506, end: 20171203
  2. ROSUVASTATIN. [Concomitant]
     Active Substance: ROSUVASTATIN
     Dosage: 5 MG, BID
     Route: 048
  3. ENTYVIO [Concomitant]
     Active Substance: VEDOLIZUMAB
  4. ESOMEPRAZOLE [Concomitant]
     Active Substance: ESOMEPRAZOLE
     Dosage: 20 MG, QD
     Route: 048
  5. PURINETHOL [Concomitant]
     Active Substance: MERCAPTOPURINE
     Dosage: 50 MG, QD
     Route: 048
  6. MIRO [Concomitant]
     Dosage: 15 MG, QD
     Route: 048
  7. PEPTAMEN AF [Concomitant]
     Dosage: 250 ML, QD
     Route: 048
  8. REMICADE [Concomitant]
     Active Substance: INFLIXIMAB
  9. PENTASA [Concomitant]
     Active Substance: MESALAMINE

REACTIONS (25)
  - Hypokalaemia [Recovering/Resolving]
  - Red blood cell count decreased [Unknown]
  - Haematocrit decreased [Unknown]
  - Blood potassium decreased [Unknown]
  - Troponin T increased [Unknown]
  - Blood calcium decreased [Unknown]
  - Colitis ulcerative [Not Recovered/Not Resolved]
  - Blood phosphorus decreased [Unknown]
  - Blood bilirubin decreased [Unknown]
  - Blood sodium increased [Unknown]
  - C-reactive protein increased [Unknown]
  - Transferrin decreased [Unknown]
  - Blood glucose increased [Unknown]
  - Blood creatinine decreased [Unknown]
  - Lymphocyte count decreased [Unknown]
  - Neutrophil count increased [Unknown]
  - Blood albumin decreased [Unknown]
  - White blood cell count increased [Unknown]
  - Blood urea decreased [Unknown]
  - Haemoglobin decreased [Unknown]
  - Hypophosphataemia [Recovering/Resolving]
  - Hypomagnesaemia [Recovering/Resolving]
  - Protein total decreased [Unknown]
  - Blood uric acid decreased [Unknown]
  - Blood iron decreased [Unknown]

NARRATIVE: CASE EVENT DATE: 20170810
